FAERS Safety Report 8162861-2 (Version None)
Quarter: 2012Q1

REPORT INFORMATION
  Report Type: 
  Country: None (occurrence: None)
  Receive Date: 20120224
  Receipt Date: 20120222
  Transmission Date: 20120608
  Serious: No
  Sender: FDA-Public Use
  Company Number: US-PFIZER INC-2012047589

PATIENT
  Sex: Male
  Weight: 56.689 kg

DRUGS (2)
  1. OXYCODONE [Concomitant]
     Indication: NERVE INJURY
     Dosage: UNK
  2. GABAPENTIN [Suspect]
     Indication: NERVE INJURY
     Dosage: 300 MG, 8X/DAY
     Route: 048
     Dates: start: 20050101

REACTIONS (1)
  - SPEECH DISORDER [None]
